FAERS Safety Report 24602603 (Version 1)
Quarter: 2024Q4

REPORT INFORMATION
  Report Type: Spontaneous
  Country: US (occurrence: US)
  Receive Date: 20241111
  Receipt Date: 20241111
  Transmission Date: 20250115
  Serious: Yes (Hospitalization)
  Sender: LEO PHARM
  Company Number: US-LEO Pharma-374861

PATIENT
  Age: 69 Year
  Sex: Female

DRUGS (2)
  1. ADBRY [Suspect]
     Active Substance: TRALOKINUMAB-LDRM
     Indication: Product used for unknown indication
  2. DUPIXENT [Suspect]
     Active Substance: DUPILUMAB
     Indication: Product used for unknown indication

REACTIONS (5)
  - Diverticulitis [Recovered/Resolved]
  - Gastrointestinal disorder [Unknown]
  - COVID-19 [Recovered/Resolved]
  - Weight decreased [Unknown]
  - Infection [Recovered/Resolved]

NARRATIVE: CASE EVENT DATE: 20240801
